FAERS Safety Report 12240184 (Version 1)
Quarter: 2016Q2

REPORT INFORMATION
  Report Type: Spontaneous
  Country: CN (occurrence: CN)
  Receive Date: 20160405
  Receipt Date: 20160405
  Transmission Date: 20160815
  Serious: Yes (Other)
  Sender: FDA-Public Use
  Company Number: CN-BAXTER-2016BAX016821

PATIENT
  Age: 36 Year
  Sex: Female
  Weight: 63.5 kg

DRUGS (2)
  1. SODIUM LACTATE RINGER^S INJECTION 500ML [Suspect]
     Active Substance: RINGER^S SOLUTION, LACTATED
     Indication: MEDICATION DILUTION
     Route: 041
     Dates: start: 20150805, end: 20150805
  2. OXYTOCIN. [Suspect]
     Active Substance: OXYTOCIN
     Indication: UTERINE HYPOTONUS
     Dosage: 20 UNITS
     Route: 041
     Dates: start: 20150805, end: 20150805

REACTIONS (1)
  - Chills [Recovered/Resolved]

NARRATIVE: CASE EVENT DATE: 20150805
